FAERS Safety Report 14374907 (Version 1)
Quarter: 2018Q1

REPORT INFORMATION
  Report Type: Spontaneous
  Country: FR (occurrence: FR)
  Receive Date: 20180111
  Receipt Date: 20180111
  Transmission Date: 20180509
  Serious: Yes (Hospitalization, Disabling)
  Sender: FDA-Public Use
  Company Number: FR-AUROBINDO-AUR-APL-2018-001269

PATIENT
  Age: 79 Year
  Sex: Male

DRUGS (16)
  1. CUBICIN [Suspect]
     Active Substance: DAPTOMYCIN
     Indication: ENDOCARDITIS
     Dosage: 800 MG, TWO TIMES A DAY
     Route: 042
     Dates: start: 20171122
  2. GLICLAZIDE [Concomitant]
     Active Substance: GLICLAZIDE
  3. CORDARONE [Concomitant]
     Active Substance: AMIODARONE HYDROCHLORIDE
  4. LASILIX                            /00032601/ [Concomitant]
     Active Substance: FUROSEMIDE
  5. GENTAMICINE PANPHARMA [Suspect]
     Active Substance: GENTAMICIN
     Indication: ENDOCARDITIS
     Dosage: 300 MG, ONCE A DAY
     Route: 041
     Dates: start: 20171108, end: 20171122
  6. DICLOFENAC [Concomitant]
     Active Substance: DICLOFENAC
  7. RAMIPRIL. [Suspect]
     Active Substance: RAMIPRIL
     Indication: HYPERTENSION
     Dosage: 5 MG, ONCE A DAY
     Route: 048
     Dates: end: 20171122
  8. RIFADINE                           /00146901/ [Suspect]
     Active Substance: RIFAMPIN
     Dosage: 1200 MG, ONCE A DAY
     Route: 048
     Dates: start: 20171109, end: 20171130
  9. UROREC [Concomitant]
     Active Substance: SILODOSIN
  10. ESOMEPRAZOLE [Concomitant]
     Active Substance: ESOMEPRAZOLE
  11. PREVISCAN                          /00261401/ [Concomitant]
     Active Substance: PENTOXIFYLLINE
  12. RIFADINE                           /00146901/ [Suspect]
     Active Substance: RIFAMPIN
     Indication: ENDOCARDITIS
     Dosage: 900 MG PAR JOUR
     Route: 048
     Dates: start: 20171201
  13. ALLOPURINOL. [Concomitant]
     Active Substance: ALLOPURINOL
  14. VANCOMYCINE [Suspect]
     Active Substance: VANCOMYCIN
     Indication: ENDOCARDITIS
     Route: 041
     Dates: start: 20171108, end: 20171122
  15. BISOPROLOL [Concomitant]
     Active Substance: BISOPROLOL
  16. KARDEGIC [Concomitant]
     Active Substance: ASPIRIN DL-LYSINE

REACTIONS (4)
  - Jaundice [Not Recovered/Not Resolved]
  - Acute kidney injury [Recovering/Resolving]
  - Hypoacusis [Recovering/Resolving]
  - Hyperbilirubinaemia [Not Recovered/Not Resolved]

NARRATIVE: CASE EVENT DATE: 20171115
